FAERS Safety Report 20582745 (Version 1)
Quarter: 2022Q1

REPORT INFORMATION
  Report Type: Report from Study
  Country: FR (occurrence: FR)
  Receive Date: 20220311
  Receipt Date: 20220311
  Transmission Date: 20220423
  Serious: Yes (Hospitalization)
  Sender: FDA-Public Use
  Company Number: FR-PFIZER INC-202200358165

PATIENT
  Age: 27 Year
  Sex: Male

DRUGS (3)
  1. PREGABALIN [Suspect]
     Active Substance: PREGABALIN
     Dosage: UNK
  2. PREGABALIN [Suspect]
     Active Substance: PREGABALIN
     Dosage: 2500 MG, DAILY
     Dates: start: 2020
  3. COCAINE [Concomitant]
     Active Substance: COCAINE
     Dosage: UNK

REACTIONS (10)
  - Overdose [Unknown]
  - Drug dependence [Unknown]
  - Hyperhidrosis [Unknown]
  - Headache [Unknown]
  - Decreased appetite [Unknown]
  - Insomnia [Unknown]
  - Parasomnia [Unknown]
  - Nightmare [Unknown]
  - Dry mouth [Unknown]
  - Back pain [Unknown]

NARRATIVE: CASE EVENT DATE: 20200101
